FAERS Safety Report 22144998 (Version 1)
Quarter: 2023Q1

REPORT INFORMATION
  Report Type: Spontaneous
  Country: US (occurrence: US)
  Receive Date: 20230328
  Receipt Date: 20230328
  Transmission Date: 20230418
  Serious: No
  Sender: FDA-Public Use
  Company Number: US-ABBVIE-4706320

PATIENT
  Age: 58 Year
  Sex: Female

DRUGS (1)
  1. CREON [Suspect]
     Active Substance: PANCRELIPASE AMYLASE\PANCRELIPASE LIPASE\PANCRELIPASE PROTEASE
     Indication: Pancreatic failure
     Route: 048
     Dates: start: 202303

REACTIONS (9)
  - Dizziness [Unknown]
  - Abdominal discomfort [Unknown]
  - Chills [Unknown]
  - Dyspepsia [Not Recovered/Not Resolved]
  - Drug ineffective [Unknown]
  - Malabsorption [Unknown]
  - Hunger [Unknown]
  - Glucose tolerance impaired [Unknown]
  - Nausea [Unknown]

NARRATIVE: CASE EVENT DATE: 20230301
